FAERS Safety Report 9263341 (Version 1)
Quarter: 2013Q2

REPORT INFORMATION
  Report Type: Spontaneous
  Country: US (occurrence: US)
  Receive Date: 20130430
  Receipt Date: 20130430
  Transmission Date: 20140414
  Serious: No
  Sender: FDA-Public Use
  Company Number: US-ABBOTT-12P-163-0977498-00

PATIENT
  Age: 59 Year
  Sex: Female
  Weight: 83.99 kg

DRUGS (1)
  1. CREON [Suspect]
     Indication: PAIN
     Dates: start: 201111, end: 201111

REACTIONS (2)
  - Off label use [Recovered/Resolved]
  - Irritability [Recovered/Resolved]
